FAERS Safety Report 9412904 (Version 2)
Quarter: 2013Q3

REPORT INFORMATION
  Report Type: Report from Study
  Country: US (occurrence: US)
  Receive Date: 20130722
  Receipt Date: 20130731
  Transmission Date: 20140515
  Serious: Yes (Other)
  Sender: FDA-Public Use
  Company Number: US-BAYER-2013-086915

PATIENT
  Sex: Female

DRUGS (1)
  1. MIRENA [Suspect]
     Dosage: 20 MCG/24HR, CONT
     Route: 015
     Dates: end: 201306

REACTIONS (17)
  - Device dislocation [None]
  - Genital injury [None]
  - Genital haemorrhage [None]
  - Post procedural haemorrhage [Recovered/Resolved]
  - Loss of libido [Recovering/Resolving]
  - Weight loss poor [None]
  - Weight increased [Recovering/Resolving]
  - Fluid retention [Recovered/Resolved]
  - Abdominal distension [None]
  - Back pain [None]
  - Depressed mood [None]
  - Anger [None]
  - Crying [None]
  - Mood swings [Recovering/Resolving]
  - Abnormal dreams [Recovering/Resolving]
  - Anxiety [None]
  - Fatigue [None]
